FAERS Safety Report 8639165 (Version 3)
Quarter: 2013Q1

REPORT INFORMATION
  Report Type: Spontaneous
  Country: US (occurrence: None)
  Receive Date: 20120618
  Receipt Date: 20121204
  Transmission Date: 20140127
  Serious: Yes (Death, Other)
  Sender: FDA-Public Use
  Company Number: 2012SGN00255

PATIENT
  Sex: Female

DRUGS (12)
  1. ADCETRIS [Suspect]
     Indication: HODGKIN^S DISEASE
     Route: 042
     Dates: start: 20120330, end: 20120509
  2. MULTIVITAMIN (VITAMINS NOS) [Concomitant]
  3. PREDNISOLONE (PREDNISOLONE ACETATE) [Concomitant]
  4. MORPHINE [Concomitant]
  5. LINEZOLID (LINEZOLID) [Concomitant]
  6. FLUTICASONE (FLUTICASONE PROPIONATE) [Concomitant]
  7. ACETAMINOPHEN (ACETAMINOPHEN) [Concomitant]
  8. DIPHENHYDRAMINE (AMMONIUM CHLORIDE, DIPHENHYDRAMINE HYDROCHLORIDE) [Concomitant]
  9. LACTOBACILLUS (LACTOBACILLUS ACIDOPHILUS) [Concomitant]
  10. ONDANSETRON (ONDANSETRON) [Concomitant]
  11. OMEPRAZOLE (OMEPRAZOLE) [Concomitant]
  12. NAPROXEN (NAPROXEN SODIUM) [Concomitant]

REACTIONS (5)
  - Rectal ulcer [None]
  - Rectal haemorrhage [None]
  - Off label use [None]
  - Hodgkin^s disease [None]
  - Malignant neoplasm progression [None]
